FAERS Safety Report 6729790-X (Version None)
Quarter: 2010Q2

REPORT INFORMATION
  Report Type: 
  Country: None (occurrence: None)
  Receive Date: 20100518
  Receipt Date: 20100506
  Transmission Date: 20101027
  Serious: Yes (Other)
  Sender: FDA-Public Use
  Company Number: CA-PFIZER INC-2010018934

PATIENT
  Age: 89 Year
  Sex: Male
  Weight: 78.005 kg

DRUGS (14)
  1. DETROL [Suspect]
     Indication: HYPERTONIC BLADDER
     Dosage: 2 MG, 2X/DAY
     Route: 048
     Dates: start: 20080926
  2. FLOMAX [Concomitant]
     Dosage: 1 PER DAY
     Route: 048
  3. CALCIUM [Concomitant]
     Dosage: 500 MG, 2X/DAY
     Route: 048
  4. COLECALCIFEROL [Concomitant]
     Dosage: 400 IU, 1X/DAY
     Route: 048
  5. CUMADIN [Concomitant]
     Dosage: 5 MG, 1X/DAY
     Route: 048
  6. ALTACE [Concomitant]
     Dosage: 2.5 MG, 1X/DAY
     Route: 048
  7. ASPIRIN [Concomitant]
     Dosage: 81 MG, 1X/DAY
     Route: 048
  8. ZOCOR [Concomitant]
     Dosage: 5 MG, 1X/DAY
     Route: 048
  9. DITROPAN [Concomitant]
     Dosage: 5 MG, 2X/DAY
     Route: 048
     Dates: end: 20100425
  10. ALDACTONE [Concomitant]
     Dosage: 25 MG, 2X/DAY
     Route: 048
  11. FOLIC ACID [Concomitant]
     Dosage: 5 MG, 1X/DAY
     Route: 048
  12. LASIX [Concomitant]
     Dosage: 20 MG, 1X/DAY
     Route: 048
  13. VITALUX [Concomitant]
     Dosage: 1 TABLET TWICE DAILY
     Route: 048
  14. VITAMIN C [Concomitant]
     Dosage: 500 MG, 2X/DAY
     Route: 048

REACTIONS (3)
  - DRY MOUTH [None]
  - POLLAKIURIA [None]
  - SPINAL COLUMN STENOSIS [None]
